FAERS Safety Report 15944074 (Version 1)
Quarter: 2019Q1

REPORT INFORMATION
  Report Type: Report from Study
  Country: US (occurrence: US)
  Receive Date: 20190211
  Receipt Date: 20190211
  Transmission Date: 20190417
  Serious: Yes (Death, Other)
  Sender: FDA-Public Use
  Company Number: US-BRISTOL-MYERS SQUIBB COMPANY-BMS-2016-087468

PATIENT
  Sex: Male

DRUGS (1)
  1. NIVOLUMAB [Suspect]
     Active Substance: NIVOLUMAB
     Indication: LUNG NEOPLASM MALIGNANT
     Route: 042

REACTIONS (20)
  - Blood calcium increased [Unknown]
  - Asthenia [Unknown]
  - Anxiety [Unknown]
  - Skin ulcer [Unknown]
  - Tremor [Unknown]
  - Tinnitus [Unknown]
  - Drug ineffective [Unknown]
  - Malignant neoplasm progression [Unknown]
  - Constipation [Unknown]
  - Somnolence [Unknown]
  - Localised infection [Unknown]
  - Pollakiuria [Unknown]
  - Oropharyngeal pain [Unknown]
  - Death [Fatal]
  - Peripheral swelling [Unknown]
  - Ocular hyperaemia [Unknown]
  - Productive cough [Unknown]
  - Musculoskeletal pain [Recovered/Resolved]
  - Pain in extremity [Unknown]
  - Diarrhoea [Unknown]
